FAERS Safety Report 26024403 (Version 1)
Quarter: 2025Q4

REPORT INFORMATION
  Report Type: Spontaneous
  Country: SY (occurrence: SY)
  Receive Date: 20251111
  Receipt Date: 20251111
  Transmission Date: 20260118
  Serious: Yes (Life-Threatening, Hospitalization, Other)
  Sender: NOSTRUM PHARMACEUTICALS LLC
  Company Number: SY-NP-2025-110820-LIT-73

PATIENT
  Age: 22 Year
  Sex: Female

DRUGS (1)
  1. METFORMIN [Suspect]
     Active Substance: METFORMIN HYDROCHLORIDE
     Dosage: UP TO 3000 MG DAILY
     Dates: start: 2021, end: 202208

REACTIONS (4)
  - Drug abuse [Recovered/Resolved]
  - Lactic acidosis [Recovered/Resolved]
  - Multiple organ dysfunction syndrome [Recovered/Resolved]
  - Off label use [Recovered/Resolved]

NARRATIVE: CASE EVENT DATE: 20210101
